FAERS Safety Report 10257387 (Version 1)
Quarter: 2014Q2

REPORT INFORMATION
  Report Type: Spontaneous
  Country: DE (occurrence: None)
  Receive Date: 20140620
  Receipt Date: 20140620
  Transmission Date: 20141212
  Serious: Yes (Hospitalization)
  Sender: FDA-Public Use
  Company Number: DE-LHC-2014053

PATIENT
  Age: 62 Year
  Sex: Male

DRUGS (10)
  1. CONOXIA [Suspect]
     Indication: CHRONIC OBSTRUCTIVE PULMONARY DISEASE
     Route: 055
  2. TILIDIN [Concomitant]
  3. PREDNISOLON [Concomitant]
  4. ACC [Concomitant]
  5. OMEPRAZOL [Concomitant]
  6. THEOPHYLLIN [Concomitant]
  7. BUDESONID [Concomitant]
  8. SPIRIVA [Concomitant]
  9. BEROTEC [Concomitant]
  10. FORMOTEROL [Concomitant]

REACTIONS (1)
  - Burns second degree [None]
